FAERS Safety Report 8548552-4 (Version None)
Quarter: 2012Q3

REPORT INFORMATION
  Report Type: 
  Country: None (occurrence: None)
  Receive Date: 20120717
  Receipt Date: 20120705
  Transmission Date: 20120928
  Serious: Yes (Other)
  Sender: FDA-Public Use
  Company Number: FK201201848

PATIENT
  Age: 72 Year
  Sex: Female

DRUGS (3)
  1. DEXAMETHASONE SODIUM PHOSPHATE [Suspect]
     Indication: MULTIPLE MYELOMA
     Dosage: ORAL
     Route: 048
  2. PAMIDRONATE DISODIUM [Concomitant]
  3. LENALIDOMIDE [Concomitant]

REACTIONS (15)
  - MUSCULAR WEAKNESS [None]
  - HYPERTENSION [None]
  - VISUAL IMPAIRMENT [None]
  - BONE PAIN [None]
  - OEDEMA PERIPHERAL [None]
  - DECREASED APPETITE [None]
  - TOXICITY TO VARIOUS AGENTS [None]
  - CONSTIPATION [None]
  - SPINAL FRACTURE [None]
  - POLYURIA [None]
  - NEUTROPENIA [None]
  - LEUKOPENIA [None]
  - MUSCLE SPASMS [None]
  - NAUSEA [None]
  - DERMATITIS BULLOUS [None]
